FAERS Safety Report 8188493-8 (Version None)
Quarter: 2012Q1

REPORT INFORMATION
  Report Type: 
  Country: None (occurrence: None)
  Receive Date: 20120306
  Receipt Date: 20120301
  Transmission Date: 20120608
  Serious: Yes (Death)
  Sender: FDA-Public Use
  Company Number: PHHY2011CA53867

PATIENT
  Sex: Female

DRUGS (3)
  1. SANDOSTATIN LAR [Suspect]
     Indication: NEUROENDOCRINE TUMOUR
     Dosage: 30 MG, QMO
     Route: 030
     Dates: start: 20110301
  2. RADIOTHERAPY [Concomitant]
  3. SANDOSTATIN LAR [Suspect]
     Dosage: 30 MG, QMO
     Route: 030
     Dates: start: 20110606, end: 20120209

REACTIONS (7)
  - FEELING ABNORMAL [None]
  - ASTHENIA [None]
  - DIARRHOEA [None]
  - DEATH [None]
  - SWELLING [None]
  - EATING DISORDER [None]
  - ARTHRALGIA [None]
